FAERS Safety Report 12348333 (Version 1)
Quarter: 2016Q2

REPORT INFORMATION
  Report Type: Spontaneous
  Country: US (occurrence: US)
  Receive Date: 20160509
  Receipt Date: 20160509
  Transmission Date: 20160815
  Serious: No
  Sender: FDA-Public Use
  Company Number: US-WARNER CHILCOTT, LLC-1051710

PATIENT
  Age: 56 Year
  Sex: Female

DRUGS (6)
  1. ATELVIA [Suspect]
     Active Substance: RISEDRONATE SODIUM
     Indication: MENOPAUSE
     Route: 048
     Dates: start: 20150829, end: 20150829
  2. GLUCOSAMINE CHONDROITIN [Concomitant]
     Active Substance: CHONDROITIN SULFATE (BOVINE)\GLUCOSAMINE HYDROCHLORIDE
  3. ATELVIA [Suspect]
     Active Substance: RISEDRONATE SODIUM
     Indication: BONE DENSITY DECREASED
     Route: 048
     Dates: start: 20150829, end: 20150829
  4. VICODIN [Concomitant]
     Active Substance: ACETAMINOPHEN\HYDROCODONE BITARTRATE
  5. CENTRUM [Concomitant]
     Active Substance: VITAMINS
  6. NABUMETONE. [Concomitant]
     Active Substance: NABUMETONE

REACTIONS (3)
  - Peripheral swelling [Not Recovered/Not Resolved]
  - Back pain [Not Recovered/Not Resolved]
  - Abdominal pain upper [Not Recovered/Not Resolved]
